FAERS Safety Report 16128704 (Version 3)
Quarter: 2019Q2

REPORT INFORMATION
  Report Type: Report from Study
  Country: None (occurrence: IT)
  Receive Date: 20190328
  Receipt Date: 20190624
  Transmission Date: 20190711
  Serious: Yes (Hospitalization, Other)
  Sender: FDA-Public Use
  Company Number: IT-ABBVIE-19S-083-2720030-00

PATIENT
  Age: 74 Year
  Sex: Male

DRUGS (1)
  1. DUODOPA [Suspect]
     Active Substance: CARBIDOPA\LEVODOPA
     Indication: PARKINSON^S DISEASE
     Dosage: MD: 4,6+3 CR: 3,1 ED: 2
     Route: 050
     Dates: start: 20160118, end: 20190408

REACTIONS (2)
  - General physical health deterioration [Unknown]
  - Intestinal ulcer [Unknown]

NARRATIVE: CASE EVENT DATE: 20190322
